FAERS Safety Report 25221559 (Version 2)
Quarter: 2025Q2

REPORT INFORMATION
  Report Type: Spontaneous
  Country: US (occurrence: US)
  Receive Date: 20250421
  Receipt Date: 20250610
  Transmission Date: 20250716
  Serious: No
  Sender: SANOFI AVENTIS
  Company Number: US-SA-2025SA113710

PATIENT
  Age: 54 Year
  Sex: Male

DRUGS (23)
  1. DUPIXENT [Suspect]
     Active Substance: DUPILUMAB
     Indication: Nasal polyps
     Dosage: 300 MG, QOW
     Route: 058
     Dates: start: 20250325
  2. ALBUTEROL SULFATE [Concomitant]
     Active Substance: ALBUTEROL SULFATE
  3. AZELASTINE [Concomitant]
     Active Substance: AZELASTINE
  4. BREO ELLIPTA [Concomitant]
     Active Substance: FLUTICASONE FUROATE\VILANTEROL TRIFENATATE
  5. CLOTRIMAZOLE [Concomitant]
     Active Substance: CLOTRIMAZOLE
  6. DEXAMETHASONE [Concomitant]
     Active Substance: DEXAMETHASONE
  7. DOXYCYCLINE HYCLATE [Concomitant]
     Active Substance: DOXYCYCLINE HYCLATE
  8. ELIQUIS [Concomitant]
     Active Substance: APIXABAN
  9. EPINEPHRINE [Concomitant]
     Active Substance: EPINEPHRINE
  10. FAMOTIDINE [Concomitant]
     Active Substance: FAMOTIDINE
  11. HYDROXYCHLOROQUINE [Concomitant]
     Active Substance: HYDROXYCHLOROQUINE
  12. IPRATROPIUM [Concomitant]
     Active Substance: IPRATROPIUM
  13. JANTOVEN [Concomitant]
     Active Substance: WARFARIN SODIUM
  14. MONTELUKAST [Concomitant]
     Active Substance: MONTELUKAST
  15. OXYCODONE [Concomitant]
     Active Substance: OXYCODONE
  16. PROCTO-MED HC [Concomitant]
     Active Substance: HYDROCORTISONE
  17. SEREVENT DISKUS [Concomitant]
     Active Substance: SALMETEROL XINAFOATE
  18. SHINGRIX [Concomitant]
     Active Substance: RECOMBINANT VARICELLA ZOSTER VIRUS (VZV) GLYCOPROTEIN E
  19. STELARA [Concomitant]
     Active Substance: USTEKINUMAB
  20. STRIVERDI RESPIMAT [Concomitant]
     Active Substance: OLODATEROL HYDROCHLORIDE
  21. TIZANIDINE [Concomitant]
     Active Substance: TIZANIDINE
  22. VENTOLIN HFA [Concomitant]
     Active Substance: ALBUTEROL SULFATE
  23. WARFARIN [Concomitant]
     Active Substance: WARFARIN

REACTIONS (2)
  - Impaired quality of life [Recovered/Resolved]
  - Injection site reaction [Unknown]

NARRATIVE: CASE EVENT DATE: 20250101
